FAERS Safety Report 7763146-6 (Version None)
Quarter: 2011Q3

REPORT INFORMATION
  Report Type: 
  Country: None (occurrence: None)
  Receive Date: 20110920
  Receipt Date: 20110912
  Transmission Date: 20111222
  Serious: Yes (Hospitalization, Other)
  Sender: FDA-Public Use
  Company Number: PHHY2011CA82377

PATIENT
  Sex: Female

DRUGS (1)
  1. SANDOSTATIN LAR [Suspect]
     Indication: PANCREATIC CYST
     Dosage: 20 MG EVERY 4 WEEKS
     Route: 030
     Dates: start: 20110210, end: 20110811

REACTIONS (3)
  - NAUSEA [None]
  - DECREASED APPETITE [None]
  - WEIGHT DECREASED [None]
